FAERS Safety Report 4318250-1 (Version None)
Quarter: 2004Q1

REPORT INFORMATION
  Report Type: 
  Country: None (occurrence: None)
  Receive Date: 20040315
  Receipt Date: 20040225
  Transmission Date: 20041129
  Serious: No
  Sender: FDA-Public Use
  Company Number: A06200400052

PATIENT
  Age: 73 Year
  Sex: Female

DRUGS (5)
  1. DANAZOL [Suspect]
     Indication: THROMBOCYTOPENIC PURPURA
     Dosage: 200 MG, QID, ORAL
     Route: 048
     Dates: start: 20030930, end: 20031127
  2. PREDNISONE [Concomitant]
  3. LASIX [Concomitant]
  4. LIMPIDEX (LANSOPRAZOLE) [Concomitant]
  5. CLEXANE (HEPARIN-FRACTION, SODIUM SALT) [Concomitant]

REACTIONS (1)
  - AGRANULOCYTOSIS [None]
